FAERS Safety Report 13237371 (Version 1)
Quarter: 2017Q1

REPORT INFORMATION
  Report Type: Spontaneous
  Country: US (occurrence: US)
  Receive Date: 20170215
  Receipt Date: 20170215
  Transmission Date: 20170428
  Serious: No
  Sender: FDA-Public Use
  Company Number: US-LUNDBECK-DKLU2025267

PATIENT
  Sex: Male
  Weight: 20 kg

DRUGS (5)
  1. CBD OIL [Concomitant]
     Active Substance: CANNABIDIOL
     Route: 065
  2. GUAIFENSIN [Concomitant]
     Indication: PRODUCT USED FOR UNKNOWN INDICATION
     Route: 065
  3. GUAIFENSIN [Concomitant]
     Route: 065
  4. CBD OIL [Concomitant]
     Active Substance: CANNABIDIOL
     Indication: PRODUCT USED FOR UNKNOWN INDICATION
     Route: 065
  5. ONFI [Suspect]
     Active Substance: CLOBAZAM
     Indication: OFF LABEL USE
     Route: 065
     Dates: start: 201504

REACTIONS (2)
  - Off label use [Not Recovered/Not Resolved]
  - Weight increased [Unknown]
